FAERS Safety Report 12712747 (Version 3)
Quarter: 2017Q2

REPORT INFORMATION
  Report Type: Report from Study
  Country: CA (occurrence: CA)
  Receive Date: 20160902
  Receipt Date: 20170523
  Transmission Date: 20170830
  Serious: Yes (Other)
  Sender: FDA-Public Use
  Company Number: CA-ALEXION PHARMACEUTICALS INC.-A201606438

PATIENT
  Age: 16 Year
  Sex: Female
  Weight: 50 kg

DRUGS (3)
  1. SOLIRIS [Suspect]
     Active Substance: ECULIZUMAB
     Dosage: 1200 MG, QW
     Route: 042
  2. SOLIRIS [Suspect]
     Active Substance: ECULIZUMAB
     Dosage: 1200 MG, Q3W
     Route: 042
     Dates: start: 20160923
  3. SOLIRIS [Suspect]
     Active Substance: ECULIZUMAB
     Indication: HAEMOLYTIC URAEMIC SYNDROME
     Dosage: 900 MG, QW
     Route: 042
     Dates: start: 20160823

REACTIONS (15)
  - Retinal vein occlusion [Not Recovered/Not Resolved]
  - Seizure [Recovering/Resolving]
  - Hypertension [Recovering/Resolving]
  - Endothelial dysfunction [Recovering/Resolving]
  - Incorrect dose administered [Unknown]
  - Nervous system disorder [Recovering/Resolving]
  - Posterior reversible encephalopathy syndrome [Recovering/Resolving]
  - Cerebrovascular accident [Recovered/Resolved]
  - Blood lactate dehydrogenase abnormal [Unknown]
  - Blindness [Recovering/Resolving]
  - Thrombotic microangiopathy [Recovering/Resolving]
  - Platelet count decreased [Recovering/Resolving]
  - Disorientation [Recovering/Resolving]
  - Headache [Recovering/Resolving]
  - Inappropriate schedule of drug administration [Not Recovered/Not Resolved]

NARRATIVE: CASE EVENT DATE: 20160525
